FAERS Safety Report 21649426 (Version 1)
Quarter: 2022Q4

REPORT INFORMATION
  Report Type: Spontaneous
  Country: US (occurrence: None)
  Receive Date: 20221123
  Receipt Date: 20221123
  Transmission Date: 20230113
  Serious: Yes (Other)
  Sender: FDA-Public Use
  Company Number: None

PATIENT
  Age: 61 Year
  Sex: Female
  Weight: 92.75 kg

DRUGS (1)
  1. GAMMAGARD S/D [Suspect]
     Active Substance: HUMAN IMMUNOGLOBULIN G
     Indication: Immunodeficiency common variable
     Route: 042

REACTIONS (8)
  - Infusion related reaction [None]
  - Chest pain [None]
  - Dyspnoea [None]
  - Arthralgia [None]
  - Blood pressure increased [None]
  - Body temperature increased [None]
  - Tremor [None]
  - Traumatic lung injury [None]

NARRATIVE: CASE EVENT DATE: 20221123
